FAERS Safety Report 22384512 (Version 1)
Quarter: 2023Q2

REPORT INFORMATION
  Report Type: Spontaneous
  Country: US (occurrence: US)
  Receive Date: 20230530
  Receipt Date: 20230530
  Transmission Date: 20230722
  Serious: No
  Sender: FDA-Public Use
  Company Number: US-PERRIGO-23US003644

PATIENT
  Sex: Male

DRUGS (1)
  1. MINOXIDIL [Suspect]
     Active Substance: MINOXIDIL
     Indication: Alopecia
     Dosage: UNKNOWN, UNKNOWN
     Route: 061
     Dates: start: 202303, end: 202303

REACTIONS (6)
  - Application site urticaria [Recovered/Resolved]
  - Application site haemorrhage [Recovered/Resolved]
  - Application site exfoliation [Recovered/Resolved]
  - Application site bruise [Unknown]
  - Condition aggravated [Recovered/Resolved]
  - Drug ineffective [Unknown]

NARRATIVE: CASE EVENT DATE: 20230301
